FAERS Safety Report 10044896 (Version 6)
Quarter: 2016Q4

REPORT INFORMATION
  Report Type: Spontaneous
  Country: US (occurrence: US)
  Receive Date: 20140328
  Receipt Date: 20161118
  Transmission Date: 20170206
  Serious: Yes (Hospitalization, Other)
  Sender: FDA-Public Use
  Company Number: US-GLAXOSMITHKLINE-A1066393A

PATIENT
  Sex: Male

DRUGS (9)
  1. FLOLAN DILUENT PH 12 SOLUTION FOR INJECTION [Suspect]
     Active Substance: GLYCINE\MANNITOL\SODIUM CHLORIDE
     Indication: PULMONARY HYPERTENSION
     Dosage: UNK
  2. COUMADIN [Concomitant]
     Active Substance: WARFARIN SODIUM
  3. FLOLAN [Suspect]
     Active Substance: EPOPROSTENOL SODIUM
     Dosage: 56 NG/KG/MIN, CO (CONCENTRATION 75,000 NG/ML, PUMP RATE 78 ML/DAY, VIAL STRENGTH 1.5)
  4. FLOLAN [Suspect]
     Active Substance: EPOPROSTENOL SODIUM
     Dosage: 56 NG/KG/MIN, CO
     Dates: start: 20050510
  5. FLOLAN [Suspect]
     Active Substance: EPOPROSTENOL SODIUM
     Indication: PULMONARY HYPERTENSION
     Dosage: 56 NG/KG/MIN (CONCENTRATION 75,000 NG/ML, PUMP RATE 78 ML/DAY, VIAL STRENGTH 1.5), CO
     Route: 042
  6. FLOLAN DILUENT PH 12 SOLUTION FOR INJECTION [Suspect]
     Active Substance: GLYCINE\MANNITOL\SODIUM CHLORIDE
     Dosage: UNK
  7. FLOLAN [Suspect]
     Active Substance: EPOPROSTENOL SODIUM
     Indication: COR PULMONALE CHRONIC
     Dosage: 56 NG/KG/MIN, 75,000 NG/ML
     Route: 042
     Dates: start: 20050510
  8. FLOLAN [Suspect]
     Active Substance: EPOPROSTENOL SODIUM
     Dosage: 56 DF, CO
     Dates: start: 20050510
  9. ADCIRCA [Concomitant]
     Active Substance: TADALAFIL

REACTIONS (5)
  - Device related infection [Not Recovered/Not Resolved]
  - Catheter site infection [Recovered/Resolved]
  - Complication associated with device [Unknown]
  - Catheter site erythema [Unknown]
  - Device issue [Unknown]
